FAERS Safety Report 14530458 (Version 1)
Quarter: 2018Q1

REPORT INFORMATION
  Report Type: Spontaneous
  Country: US (occurrence: US)
  Receive Date: 20180214
  Receipt Date: 20180214
  Transmission Date: 20180509
  Serious: No
  Sender: FDA-Public Use
  Company Number: US-GLAXOSMITHKLINE-US2018024868

PATIENT

DRUGS (1)
  1. NICODERM CQ [Suspect]
     Active Substance: NICOTINE
     Indication: SMOKING CESSATION THERAPY
     Dosage: 14 MG, UNK

REACTIONS (7)
  - Nicotine dependence [Not Recovered/Not Resolved]
  - Application site discomfort [Unknown]
  - Feeling jittery [Recovered/Resolved]
  - Application site paraesthesia [Recovering/Resolving]
  - Application site irritation [Unknown]
  - Application site pain [Unknown]
  - Inappropriate schedule of drug administration [Unknown]
